FAERS Safety Report 8915916 (Version 2)
Quarter: 2013Q3

REPORT INFORMATION
  Report Type: Spontaneous
  Country: US (occurrence: US)
  Receive Date: 20121119
  Receipt Date: 20130723
  Transmission Date: 20140515
  Serious: Yes (Death, Hospitalization, Other)
  Sender: FDA-Public Use
  Company Number: US-PFIZER INC-2012288150

PATIENT
  Age: 49 Year
  Sex: Male

DRUGS (1)
  1. ARGATROBAN [Suspect]
     Indication: THROMBOSIS
     Dosage: UNK
     Route: 040
     Dates: start: 20101107, end: 20101107

REACTIONS (7)
  - Wrong technique in drug usage process [Fatal]
  - Accidental overdose [Fatal]
  - Acute respiratory distress syndrome [Fatal]
  - Pneumonia [Fatal]
  - Renal failure [Fatal]
  - Tremor [Unknown]
  - Confusional state [Unknown]
